FAERS Safety Report 20587256 (Version 1)
Quarter: 2022Q1

REPORT INFORMATION
  Report Type: Spontaneous
  Country: US (occurrence: US)
  Receive Date: 20220314
  Receipt Date: 20220314
  Transmission Date: 20220423
  Serious: No
  Sender: FDA-Public Use
  Company Number: US-GLAXOSMITHKLINE-US2022045210

PATIENT
  Age: 91 Year
  Sex: Female

DRUGS (2)
  1. FLONASE ALLERGY RELIEF [Suspect]
     Active Substance: FLUTICASONE PROPIONATE
     Indication: Hypersensitivity
     Dosage: UNK
     Dates: start: 20211104
  2. FLONASE ALLERGY RELIEF [Suspect]
     Active Substance: FLUTICASONE PROPIONATE
     Indication: Nasal disorder

REACTIONS (4)
  - Dysphonia [Unknown]
  - Nasal pruritus [Unknown]
  - Nasal ulcer [Unknown]
  - Ear disorder [Unknown]
